FAERS Safety Report 16918115 (Version 2)
Quarter: 2019Q4

REPORT INFORMATION
  Report Type: Other
  Country: FR (occurrence: FR)
  Receive Date: 20191015
  Receipt Date: 20191017
  Transmission Date: 20200122
  Serious: Yes (Death, Congenital Anomaly, Other)
  Sender: FDA-Public Use
  Company Number: FR-APOTEX-2019AP023490

PATIENT
  Sex: Male

DRUGS (3)
  1. PAROXETINE. [Suspect]
     Active Substance: PAROXETINE
     Dosage: 10 MG, QD
     Route: 064
     Dates: start: 20190527
  2. ESCITALOPRAM [Suspect]
     Active Substance: ESCITALOPRAM OXALATE
     Indication: DEPRESSION
     Dosage: 20 MG, QD, (20 MG DAILY)
     Route: 064
     Dates: start: 20181101, end: 20190501
  3. PAROXETINE. [Suspect]
     Active Substance: PAROXETINE
     Indication: DEPRESSION
     Dosage: 20 MG, QD
     Route: 064
     Dates: start: 20190501, end: 20190527

REACTIONS (2)
  - Congenital diaphragmatic hernia [Fatal]
  - Foetal exposure during pregnancy [Unknown]

NARRATIVE: CASE EVENT DATE: 2019
